FAERS Safety Report 7001433-X (Version None)
Quarter: 2010Q3

REPORT INFORMATION
  Report Type: 
  Country: None (occurrence: None)
  Receive Date: 20100920
  Receipt Date: 20100323
  Transmission Date: 20110219
  Serious: No
  Sender: FDA-Public Use
  Company Number: US-ASTRAZENECA-2010SE12827

PATIENT
  Sex: Male
  Weight: 99.8 kg

DRUGS (4)
  1. SEROQUEL [Suspect]
     Indication: BIPOLAR DISORDER
     Route: 048
  2. SEROQUEL [Suspect]
     Indication: OBSESSIVE-COMPULSIVE DISORDER
     Route: 048
  3. DOXEPIN HCL [Concomitant]
  4. LAMICTAL [Concomitant]

REACTIONS (6)
  - EJACULATION FAILURE [None]
  - EPISTAXIS [None]
  - HEADACHE [None]
  - HYPERTENSION [None]
  - RENAL IMPAIRMENT [None]
  - WEIGHT INCREASED [None]
